FAERS Safety Report 4586542-7 (Version None)
Quarter: 2005Q1

REPORT INFORMATION
  Report Type: 
  Country: None (occurrence: None)
  Receive Date: 20050218
  Receipt Date: 20040218
  Transmission Date: 20050727
  Serious: No
  Sender: FDA-Public Use
  Company Number: US-BRISTOL-MYERS SQUIBB COMPANY-12511390

PATIENT

DRUGS (1)
  1. TAXOL [Suspect]

REACTIONS (2)
  - FAECAL INCONTINENCE [None]
  - NEUROPATHY [None]
